FAERS Safety Report 10643242 (Version 1)
Quarter: 2014Q4

REPORT INFORMATION
  Report Type: Spontaneous
  Country: US (occurrence: None)
  Receive Date: 20141209
  Receipt Date: 20141209
  Transmission Date: 20150529
  Serious: Yes (Life-Threatening)
  Sender: FDA-Public Use
  Company Number: None

PATIENT
  Age: 63 Year
  Sex: Female
  Weight: 74 kg

DRUGS (9)
  1. EXPAREL [Suspect]
     Active Substance: BUPIVACAINE
     Indication: SURGERY
     Dates: start: 20140922
  2. IV ACETAMINOPHEN [Concomitant]
  3. CHLORHEXIDINE ORAL RINSE [Concomitant]
  4. PANTOPRAZOLE [Concomitant]
     Active Substance: PANTOPRAZOLE SODIUM
  5. FENTANYL. [Concomitant]
     Active Substance: FENTANYL
  6. INSULIN [Concomitant]
     Active Substance: INSULIN NOS
  7. DIPHENHYDRAMIDE [Concomitant]
  8. EXPAREL [Suspect]
     Active Substance: BUPIVACAINE
     Indication: NERVE BLOCK
     Dates: start: 20140922
  9. PROPOFOL. [Concomitant]
     Active Substance: PROPOFOL

REACTIONS (6)
  - Psychomotor hyperactivity [None]
  - Tremor [None]
  - Ataxia [None]
  - Neurotoxicity [None]
  - Procedural pain [None]
  - Accidental overdose [None]

NARRATIVE: CASE EVENT DATE: 20140922
